FAERS Safety Report 21081482 (Version 2)
Quarter: 2022Q3

REPORT INFORMATION
  Report Type: Spontaneous
  Country: CO (occurrence: CO)
  Receive Date: 20220714
  Receipt Date: 20220801
  Transmission Date: 20221027
  Serious: Yes (Death, Hospitalization, Other)
  Sender: FDA-Public Use
  Company Number: CO-SA-SAC20220713001325

PATIENT
  Sex: Female

DRUGS (1)
  1. PRALUENT [Suspect]
     Active Substance: ALIROCUMAB
     Indication: Type IIa hyperlipidaemia
     Dosage: 75 MG, Q15D
     Route: 058
     Dates: start: 20210701

REACTIONS (4)
  - Cardio-respiratory arrest [Fatal]
  - Hypotension [Unknown]
  - Somnolence [Unknown]
  - Discouragement [Unknown]

NARRATIVE: CASE EVENT DATE: 20220710
